FAERS Safety Report 8773411 (Version 3)
Quarter: 2012Q4

REPORT INFORMATION
  Report Type: 
  Country: GB (occurrence: GB)
  Receive Date: 20120907
  Receipt Date: 20120921
  Transmission Date: 20130627
  Serious: Yes (Hospitalization, Other)
  Sender: FDA-Public Use
  Company Number: GB-VERTEX PHARMACEUTICAL INC.-000000000000000479

PATIENT
  Age: 46 Year
  Sex: Male
  Weight: 105 kg

DRUGS (6)
  1. INCIVO [Suspect]
     Indication: HEPATITIS C
     Dosage: 750 mg, tid
     Route: 048
     Dates: start: 20120217, end: 20120327
  2. PEGASYS [Suspect]
     Indication: HEPATITIS C
     Dosage: 180 ?g, once a week
     Route: 058
     Dates: start: 20120217, end: 20120327
  3. RIBAVIRIN [Suspect]
     Indication: HEPATITIS C
     Dosage: 600 mg, bid
     Route: 048
     Dates: start: 20120217, end: 20120327
  4. FILGRASTIM [Concomitant]
     Indication: NEUTROPENIA
     Dosage: 300 ?g, qd
     Route: 065
     Dates: start: 20120308, end: 20120326
  5. SPIRONOLACTONE [Concomitant]
     Indication: OEDEMA
     Dosage: 100 mg, qd
     Route: 048
  6. FUROSEMIDE [Concomitant]
     Indication: OEDEMA
     Dosage: 20 mg, qd
     Route: 048

REACTIONS (5)
  - Hepatic failure [Unknown]
  - Ascites [Recovered/Resolved]
  - Hepatic cirrhosis [Unknown]
  - Neutropenia [Unknown]
  - Oedema peripheral [Recovered/Resolved]
